FAERS Safety Report 8081915-2 (Version None)
Quarter: 2012Q1

REPORT INFORMATION
  Report Type: 
  Country: None (occurrence: None)
  Receive Date: 20120130
  Receipt Date: 20120126
  Transmission Date: 20120608
  Serious: No
  Sender: FDA-Public Use
  Company Number: US-BAYER-2012-009229

PATIENT
  Sex: Female

DRUGS (2)
  1. UNKNOWN [Concomitant]
  2. ALEVE (CAPLET) [Suspect]
     Dosage: 2 DF, QD
     Route: 048

REACTIONS (1)
  - BLOOD PRESSURE INCREASED [None]
